FAERS Safety Report 6908259-3 (Version None)
Quarter: 2010Q3

REPORT INFORMATION
  Report Type: 
  Country: None (occurrence: None)
  Receive Date: 20100805
  Receipt Date: 20100729
  Transmission Date: 20110219
  Serious: Yes (Hospitalization)
  Sender: FDA-Public Use
  Company Number: US-ROCHE-669237

PATIENT
  Sex: Female
  Weight: 87.9 kg

DRUGS (28)
  1. BEVACIZUMAB [Suspect]
     Indication: NON-SMALL CELL LUNG CANCER
     Dosage: 15 MG/KG, Q21D
     Route: 042
     Dates: start: 20090928
  2. BEVACIZUMAB [Suspect]
     Dosage: DOSE WAS REDUCED.
     Route: 042
     Dates: start: 20091110
  3. IXABEPILONE [Suspect]
     Indication: NON-SMALL CELL LUNG CANCER
     Dosage: 30 MG/M2, Q21D
     Route: 042
     Dates: start: 20090928
  4. IXABEPILONE [Suspect]
     Dosage: DOSE WAS REDUCED.
     Route: 042
     Dates: start: 20091110
  5. CARBOPLATIN [Suspect]
     Indication: NON-SMALL CELL LUNG CANCER
     Dosage: 6 AUC, Q21D
     Route: 042
     Dates: start: 20090928
  6. CARBOPLATIN [Suspect]
     Dosage: DOSE WAS REDUCED.
     Route: 042
     Dates: start: 20091110
  7. LORAZEPAM [Suspect]
     Indication: PRODUCT USED FOR UNKNOWN INDICATION
     Route: 065
  8. ONDANSETRON [Concomitant]
     Dosage: 20 MG, UNK
     Route: 042
     Dates: start: 20091020
  9. DEXAMETHASONE [Concomitant]
     Dosage: 20 MG, UNK
     Route: 042
     Dates: start: 20091020
  10. DIPHENHYDRAMINE [Concomitant]
     Dosage: 50 MG, UNK
     Route: 042
     Dates: start: 20091020
  11. FAMOTIDINE [Concomitant]
     Dosage: 20 MG, UNK
     Route: 042
     Dates: start: 20091020
  12. PROVENTIL [Concomitant]
     Dosage: 2.5 MG, UNK
  13. NORVASC [Concomitant]
     Dosage: 5 MG, QD
     Route: 048
     Dates: start: 20090913
  14. OXYCONTIN [Concomitant]
     Dosage: 10 MG, BID
     Route: 048
     Dates: end: 20091106
  15. SODIUM CHLORIDE [Concomitant]
     Dosage: 1000 ML, UNK
     Route: 042
  16. XANAX [Concomitant]
     Dosage: 0.25 TO 0.5 MG Q 4 HOURS AS NECESSARY
     Route: 048
     Dates: start: 20090820
  17. DIPHENHIST [Concomitant]
     Dosage: 12.5 MG, PRN
     Route: 048
  18. HALDOL [Concomitant]
     Dosage: UNK
     Route: 042
  19. ROXANOL [Concomitant]
     Dosage: UNK
     Route: 048
  20. PERCOCET [Concomitant]
     Dosage: 1-2 PRN Q4
     Route: 048
     Dates: start: 20091017
  21. PROCHLORPERAZINE [Concomitant]
     Dosage: 10 MG, PRN
     Route: 048
  22. SENNA [Concomitant]
     Dosage: 8.6 MG, PRN
     Route: 048
  23. TEMAZEPAM [Concomitant]
     Dosage: 15 MG, QHS
     Route: 048
     Dates: start: 20091016
  24. COMPAZINE [Concomitant]
     Dosage: 25 MG, PRN
     Dates: start: 20090919
  25. MORPHINE [Concomitant]
     Dosage: 10-20 MG HS
     Dates: start: 20090919
  26. BENADRYL [Concomitant]
     Dosage: 25 MG, QHS
     Dates: end: 20091106
  27. COLACE [Concomitant]
     Dosage: 100 MG, QD
     Dates: start: 20091006
  28. RITALIN [Concomitant]
     Dosage: 10 MG, QD
     Dates: end: 20091106

REACTIONS (1)
  - PSYCHOTIC DISORDER [None]
